FAERS Safety Report 4910131-5 (Version None)
Quarter: 2006Q1

REPORT INFORMATION
  Report Type: 
  Country: None (occurrence: None)
  Receive Date: 20060209
  Receipt Date: 20060119
  Transmission Date: 20060701
  Serious: Yes (Hospitalization)
  Sender: FDA-Public Use
  Company Number: US200512003325

PATIENT
  Age: 74 Year
  Sex: Female
  Weight: 72.6 kg

DRUGS (6)
  1. PEMETREXED (PEMETREXED) VIAL [Suspect]
     Indication: NON-SMALL CELL LUNG CANCER
     Dosage: 500 MG/M2, OTHER, INTRAVENOUS
     Route: 042
     Dates: start: 20051118, end: 20051209
  2. CISPLATIN [Suspect]
     Indication: NON-SMALL CELL LUNG CANCER
     Dosage: 75 MG/M2, OTHER, INTRAVENOUS
     Route: 042
     Dates: start: 20051118, end: 20051209
  3. VITAMIN B12 [Concomitant]
  4. FOLIC ACID [Concomitant]
  5. KYTRIL [Concomitant]
  6. DEXAMETHASONE [Concomitant]

REACTIONS (3)
  - INTESTINAL PERFORATION [None]
  - LARGE INTESTINAL ULCER [None]
  - PERITONITIS [None]
